FAERS Safety Report 5921198-X (Version None)
Quarter: 2008Q4

REPORT INFORMATION
  Report Type: 
  Country: None (occurrence: None)
  Receive Date: 20081016
  Receipt Date: 20081014
  Transmission Date: 20090506
  Serious: Yes (Hospitalization, Other)
  Sender: FDA-Public Use
  Company Number: US-B.I. PHARMACEUTICALS,INC./RIDGEFIELD-2008-BP-15807BP

PATIENT
  Sex: Female

DRUGS (1)
  1. SPIRIVA [Suspect]
     Indication: EMPHYSEMA
     Dosage: 18MCG
     Route: 055
     Dates: start: 20040101

REACTIONS (4)
  - DISTURBANCE IN ATTENTION [None]
  - HAEMOGLOBIN DECREASED [None]
  - SMALL CELL LUNG CANCER RECURRENT [None]
  - SMALL CELL LUNG CANCER STAGE UNSPECIFIED [None]
